FAERS Safety Report 6879818-1 (Version None)
Quarter: 2010Q3

REPORT INFORMATION
  Report Type: 
  Country: None (occurrence: None)
  Receive Date: 20100728
  Receipt Date: 20100719
  Transmission Date: 20110219
  Serious: Yes (Other)
  Sender: FDA-Public Use
  Company Number: US-JNJFOC-20100706034

PATIENT
  Sex: Female
  Weight: 39.01 kg

DRUGS (9)
  1. SANDOZ FENTANYL TRANSDERMAL SYSTEM [Suspect]
     Indication: PAIN
     Route: 062
  2. HYDROCODONE BITARTRATE [Concomitant]
     Indication: PAIN
     Dosage: EVERY 4-6 HOURS
     Route: 048
  3. LOPRESSOR [Concomitant]
     Indication: BLOOD PRESSURE
     Route: 048
  4. CARDIZEM [Concomitant]
     Indication: BLOOD PRESSURE
     Route: 048
  5. NAPROXEN [Concomitant]
     Indication: ARTHRITIS
     Route: 048
  6. PRILOSEC [Concomitant]
     Indication: GASTRIC ULCER
     Route: 048
  7. PLAVIX [Concomitant]
     Indication: ANTICOAGULANT THERAPY
     Route: 048
  8. ASPIRIN [Concomitant]
     Indication: MYOCARDIAL INFARCTION
     Route: 048
  9. ASPIRIN [Concomitant]
     Indication: BLOOD DISORDER
     Route: 048

REACTIONS (10)
  - APPLICATION SITE PRURITUS [None]
  - APPLICATION SITE URTICARIA [None]
  - DRUG ADMINISTERED AT INAPPROPRIATE SITE [None]
  - DRUG DEPENDENCE [None]
  - DRUG TOLERANCE INCREASED [None]
  - INAPPROPRIATE SCHEDULE OF DRUG ADMINISTRATION [None]
  - INTENTIONAL DRUG MISUSE [None]
  - PAIN [None]
  - THERAPEUTIC RESPONSE DECREASED [None]
  - WRONG TECHNIQUE IN DRUG USAGE PROCESS [None]
